FAERS Safety Report 22145235 (Version 1)
Quarter: 2023Q1

REPORT INFORMATION
  Report Type: Spontaneous
  Country: GB (occurrence: None)
  Receive Date: 20230328
  Receipt Date: 20230328
  Transmission Date: 20230418
  Serious: Yes (Other)
  Sender: FDA-Public Use
  Company Number: 2023A071906

PATIENT
  Sex: Female

DRUGS (2)
  1. FULVESTRANT [Suspect]
     Active Substance: FULVESTRANT
     Indication: Breast cancer
  2. ALPELISIB [Suspect]
     Active Substance: ALPELISIB
     Indication: Breast cancer

REACTIONS (2)
  - Hyperglycaemia [Unknown]
  - Rash [Unknown]
